FAERS Safety Report 7095818-3 (Version None)
Quarter: 2010Q4

REPORT INFORMATION
  Report Type: 
  Country: None (occurrence: None)
  Receive Date: 20101111
  Receipt Date: 20090223
  Transmission Date: 20110411
  Serious: No
  Sender: FDA-Public Use
  Company Number: US-KINGPHARMUSA00001-K200900187

PATIENT
  Age: 16 Year
  Sex: Male
  Weight: 49.887 kg

DRUGS (6)
  1. SKELAXIN [Suspect]
     Indication: BACK PAIN
     Dosage: 800 MG, PRN
     Route: 048
     Dates: start: 20090201
  2. SKELAXIN [Suspect]
     Indication: NECK PAIN
  3. SKELAXIN [Suspect]
     Indication: PAIN IN EXTREMITY
  4. ACCUTANE [Suspect]
  5. LEXAPRO [Concomitant]
     Dosage: UNK
  6. ANTIINFLAMMATORY/ANTIRHEUMATIC PRODUCTS [Concomitant]
     Dosage: UNK

REACTIONS (5)
  - DISORIENTATION [None]
  - DRUG SCREEN POSITIVE [None]
  - FEELING ABNORMAL [None]
  - LETHARGY [None]
  - MEMORY IMPAIRMENT [None]
